FAERS Safety Report 16135918 (Version 2)
Quarter: 2023Q2

REPORT INFORMATION
  Report Type: Spontaneous
  Country: US (occurrence: US)
  Receive Date: 20190329
  Receipt Date: 20230627
  Transmission Date: 20230721
  Serious: Yes (Death)
  Sender: FDA-Public Use
  Company Number: US-TEVA-2019-US-1030034

PATIENT

DRUGS (2)
  1. LIDOCAINE [Suspect]
     Active Substance: LIDOCAINE
     Indication: Anaesthesia
     Route: 065
  2. BENZOCAINE [Suspect]
     Active Substance: BENZOCAINE
     Indication: Anaesthesia
     Route: 065

REACTIONS (1)
  - Methaemoglobinaemia [Fatal]
